FAERS Safety Report 9621225 (Version 1)
Quarter: 2013Q4

REPORT INFORMATION
  Report Type: Report from Study
  Country: BR (occurrence: BR)
  Receive Date: 20131015
  Receipt Date: 20131015
  Transmission Date: 20140711
  Serious: Yes (Other)
  Sender: FDA-Public Use
  Company Number: PHHY2011BR118471

PATIENT
  Sex: Male
  Weight: 100 kg

DRUGS (3)
  1. RITALIN LA [Suspect]
     Indication: ATTENTION DEFICIT/HYPERACTIVITY DISORDER
     Dosage: 1 DF, DAILY
     Route: 048
  2. ATENSINE [Concomitant]
     Indication: ARRHYTHMIA
     Dosage: 1 DF, UKN (IN THE MORNING AND AT NIGHT)
     Route: 048
  3. NEOZINE [Concomitant]
     Indication: AGITATION
     Dosage: 0.5 DF, DAILY (HALF TABLET)
     Route: 048

REACTIONS (2)
  - Oppositional defiant disorder [Recovering/Resolving]
  - Nervous system disorder [Recovering/Resolving]
